FAERS Safety Report 7688776-1 (Version None)
Quarter: 2011Q3

REPORT INFORMATION
  Report Type: 
  Country: None (occurrence: None)
  Receive Date: 20110817
  Receipt Date: 20110812
  Transmission Date: 20111222
  Serious: Yes (Death)
  Sender: FDA-Public Use
  Company Number: PHHY2011GB72652

PATIENT
  Age: 71 Year
  Sex: Male
  Weight: 54 kg

DRUGS (8)
  1. CLOPIDOGREL [Concomitant]
     Dosage: 75 MG, QD
  2. SIMAVASTATIN [Concomitant]
     Dosage: 40 MG, QD
  3. VENLAFAXINE [Suspect]
     Indication: DEPRESSION
     Dosage: 187.5 MG/DAY
     Route: 048
  4. OLANZAPINE [Concomitant]
     Dosage: 5 MG, UNK
     Route: 048
  5. RANITIDINE [Concomitant]
     Dosage: 300 MG, BID
     Route: 048
  6. ASPIRIN [Concomitant]
     Dosage: 75 MG, QD
  7. VALPROATE SODIUM [Concomitant]
     Dosage: 800 MG, UNK
  8. BISOPROLOL FUMARATE [Concomitant]
     Dosage: 1.25 MG, QD

REACTIONS (1)
  - TOXICITY TO VARIOUS AGENTS [None]
